FAERS Safety Report 8573055-0 (Version None)
Quarter: 2012Q3

REPORT INFORMATION
  Report Type: 
  Country: None (occurrence: None)
  Receive Date: 20120806
  Receipt Date: 20120726
  Transmission Date: 20120928
  Serious: Yes (Hospitalization)
  Sender: FDA-Public Use
  Company Number: JP-ELI_LILLY_AND_COMPANY-JP201204008408

PATIENT
  Sex: Male
  Weight: 49 kg

DRUGS (4)
  1. ATOMOXETINE HYDROCHLORIDE [Suspect]
     Dosage: 35 MG, UNK
     Route: 048
     Dates: start: 20110705, end: 20110808
  2. ATOMOXETINE HYDROCHLORIDE [Suspect]
     Indication: ATTENTION DEFICIT/HYPERACTIVITY DISORDER
     Dosage: 20 MG, UNK
     Route: 048
     Dates: start: 20110621, end: 20110704
  3. ATOMOXETINE HYDROCHLORIDE [Suspect]
     Dosage: 50 MG, UNK
     Route: 048
     Dates: start: 20110809, end: 20110829
  4. ATOMOXETINE HYDROCHLORIDE [Suspect]
     Dosage: 20 MG, UNK
     Route: 048
     Dates: start: 20110830, end: 20111215

REACTIONS (2)
  - URTICARIA [None]
  - INFECTION [None]
